FAERS Safety Report 19730086 (Version 2)
Quarter: 2021Q3

REPORT INFORMATION
  Report Type: Report from Study
  Country: US (occurrence: US)
  Receive Date: 20210820
  Receipt Date: 20210830
  Transmission Date: 20211014
  Serious: Yes (Death)
  Sender: FDA-Public Use
  Company Number: US-GILEAD-2021-0544760

PATIENT
  Sex: Male

DRUGS (2)
  1. SACITUZUMAB GOVITECAN. [Suspect]
     Active Substance: SACITUZUMAB GOVITECAN
     Dosage: 1121 MG, CYCLICAL ? D1, D8 Q 3 WEEKS
     Route: 042
     Dates: start: 20210730
  2. SACITUZUMAB GOVITECAN. [Suspect]
     Active Substance: SACITUZUMAB GOVITECAN
     Indication: TRANSITIONAL CELL CARCINOMA
     Dosage: 1156 MG, CYCLICAL ? D1, D8 Q 3 WEEKS
     Route: 042
     Dates: start: 20210129

REACTIONS (1)
  - Cardiac arrest [Fatal]

NARRATIVE: CASE EVENT DATE: 20210811
